FAERS Safety Report 10031656 (Version 2)
Quarter: 2014Q4

REPORT INFORMATION
  Report Type: Spontaneous
  Country: US (occurrence: US)
  Receive Date: 20140324
  Receipt Date: 20141029
  Transmission Date: 20150528
  Serious: Yes (Other)
  Sender: FDA-Public Use
  Company Number: US-BAYER-2014-044057

PATIENT
  Sex: Female

DRUGS (1)
  1. MIRENA [Suspect]
     Active Substance: LEVONORGESTREL
     Indication: CONTRACEPTION
     Dosage: 20 MCG/24HR, CONT
     Route: 015
     Dates: start: 201201

REACTIONS (8)
  - Abdominal pain lower [None]
  - Menstruation irregular [None]
  - Genital haemorrhage [None]
  - Injury [None]
  - Pain [None]
  - Procedural pain [None]
  - Medical device pain [None]
  - Device issue [None]
